FAERS Safety Report 5599470-5 (Version None)
Quarter: 2008Q1

REPORT INFORMATION
  Report Type: 
  Country: None (occurrence: None)
  Receive Date: 20080117
  Receipt Date: 20080102
  Transmission Date: 20080703
  Serious: Yes (Other)
  Sender: FDA-Public Use
  Company Number: 2008S1000040

PATIENT
  Age: 55 Year
  Sex: Female

DRUGS (6)
  1. OMEPRAZOLE [Suspect]
     Indication: GASTROOESOPHAGEAL REFLUX DISEASE
     Dosage: 10 MG; DAILY; ORAL, 20 MG; DAILY, ORAL
     Route: 048
     Dates: start: 20060612, end: 20070710
  2. OMEPRAZOLE [Suspect]
     Indication: GASTROOESOPHAGEAL REFLUX DISEASE
     Dosage: 10 MG; DAILY; ORAL, 20 MG; DAILY, ORAL
     Route: 048
  3. ATIVAN [Concomitant]
  4. PHENERGAN /00033001/ [Concomitant]
  5. VENLAFAXINE HYDROCHLORIDE [Concomitant]
  6. XANAX [Concomitant]

REACTIONS (17)
  - ABDOMINAL PAIN [None]
  - ANAL CANCER [None]
  - COLON ADENOMA [None]
  - DEPRESSION [None]
  - DIVERTICULUM [None]
  - DRUG ADMINISTRATION ERROR [None]
  - GASTRIC POLYPS [None]
  - HAEMORRHOIDS [None]
  - HIATUS HERNIA [None]
  - NAUSEA [None]
  - PALPITATIONS [None]
  - RASH [None]
  - RECTAL CANCER [None]
  - SWELLING FACE [None]
  - TINNITUS [None]
  - VOMITING [None]
  - WEIGHT INCREASED [None]
